FAERS Safety Report 14490399 (Version 1)
Quarter: 2018Q1

REPORT INFORMATION
  Report Type: Spontaneous
  Country: GB (occurrence: GB)
  Receive Date: 20180206
  Receipt Date: 20180206
  Transmission Date: 20180509
  Serious: Yes (Life-Threatening, Hospitalization, Other)
  Sender: FDA-Public Use
  Company Number: GB-ACCORD-063142

PATIENT
  Age: 3 Year
  Sex: Male

DRUGS (1)
  1. AMITRIPTYLINE [Suspect]
     Active Substance: AMITRIPTYLINE
     Dosage: STRENGTH: 50 MG
     Route: 048

REACTIONS (10)
  - Mydriasis [Unknown]
  - Electrocardiogram PR prolongation [Unknown]
  - Blood pressure decreased [Unknown]
  - Pupillary reflex impaired [Unknown]
  - Somnolence [Unknown]
  - Electrocardiogram QRS complex prolonged [Unknown]
  - Electrocardiogram QT prolonged [Unknown]
  - Accidental exposure to product [Unknown]
  - Heart rate increased [Unknown]
  - Capillary disorder [Unknown]
